FAERS Safety Report 18595414 (Version 1)
Quarter: 2020Q4

REPORT INFORMATION
  Report Type: Spontaneous
  Country: US (occurrence: US)
  Receive Date: 20201209
  Receipt Date: 20201209
  Transmission Date: 20210114
  Serious: Yes (Other)
  Sender: FDA-Public Use
  Company Number: US-SA-2016SA041798

PATIENT

DRUGS (2)
  1. LANTUS SOLOSTAR [Suspect]
     Active Substance: INSULIN GLARGINE
     Indication: TYPE 2 DIABETES MELLITUS
     Dosage: 25 IU, QD
     Route: 065
     Dates: start: 201601
  2. LANTUS SOLOSTAR [Suspect]
     Active Substance: INSULIN GLARGINE
     Dosage: 52 IU, QD
     Route: 065
     Dates: start: 2010

REACTIONS (7)
  - Renal transplant [Unknown]
  - Visual impairment [Unknown]
  - Diabetes mellitus inadequate control [Unknown]
  - Liver transplant [Unknown]
  - Breast cancer female [Unknown]
  - Intentional product misuse [Unknown]
  - Intentional dose omission [Unknown]
